FAERS Safety Report 7977875-2 (Version None)
Quarter: 2011Q4

REPORT INFORMATION
  Report Type: 
  Country: None (occurrence: None)
  Receive Date: 20111214
  Receipt Date: 20111205
  Transmission Date: 20120403
  Serious: No
  Sender: FDA-Public Use
  Company Number: US-AMGEN-KDL326792

PATIENT
  Age: 55 Year
  Sex: Female

DRUGS (2)
  1. ENBREL [Suspect]
     Indication: PSORIASIS
     Dosage: 25 MG, 2 TIMES/WK
     Route: 058
     Dates: start: 20030721, end: 20110827
  2. WELLBUTRIN [Concomitant]

REACTIONS (5)
  - PSORIASIS [None]
  - INJECTION SITE PAIN [None]
  - ADVERSE DRUG REACTION [None]
  - THERAPEUTIC RESPONSE DECREASED [None]
  - STRESS [None]
